FAERS Safety Report 24965887 (Version 1)
Quarter: 2025Q1

REPORT INFORMATION
  Report Type: Spontaneous
  Country: US (occurrence: None)
  Receive Date: 20250213
  Receipt Date: 20250213
  Transmission Date: 20250408
  Serious: Yes (Other)
  Sender: FDA-CTU
  Company Number: None

PATIENT
  Age: 65 Year
  Sex: Female

DRUGS (1)
  1. BOTOX [Suspect]
     Active Substance: ONABOTULINUMTOXINA
     Dates: start: 20240315, end: 20250213

REACTIONS (3)
  - Neck pain [None]
  - Myalgia [None]
  - Post procedural complication [None]

NARRATIVE: CASE EVENT DATE: 20250213
